FAERS Safety Report 15858252 (Version 1)
Quarter: 2019Q1

REPORT INFORMATION
  Report Type: Report from Study
  Country: US (occurrence: US)
  Receive Date: 20190123
  Receipt Date: 20190123
  Transmission Date: 20190417
  Serious: Yes (Hospitalization)
  Sender: FDA-Public Use
  Company Number: US-JNJFOC-20190122601

PATIENT
  Age: 19 Year
  Sex: Female
  Weight: 68.04 kg

DRUGS (3)
  1. HUMIRA [Concomitant]
     Active Substance: ADALIMUMAB
     Route: 065
  2. ENTYVIO [Concomitant]
     Active Substance: VEDOLIZUMAB
     Route: 065
  3. REMICADE [Suspect]
     Active Substance: INFLIXIMAB
     Indication: INFLAMMATORY BOWEL DISEASE
     Route: 042
     Dates: start: 20071114

REACTIONS (2)
  - SAPHO syndrome [Not Recovered/Not Resolved]
  - SAPHO syndrome [Not Recovered/Not Resolved]

NARRATIVE: CASE EVENT DATE: 20160301
